FAERS Safety Report 5309544-1 (Version None)
Quarter: 2007Q2

REPORT INFORMATION
  Report Type: 
  Country: None (occurrence: None)
  Receive Date: 20070427
  Receipt Date: 20070404
  Transmission Date: 20071010
  Serious: No
  Sender: FDA-Public Use
  Company Number: US-GLAXOSMITHKLINE-A0624588A

PATIENT
  Sex: Female

DRUGS (4)
  1. DEXEDRINE [Suspect]
     Indication: ATTENTION DEFICIT/HYPERACTIVITY DISORDER
     Dosage: 5MG TWICE PER DAY
     Route: 048
     Dates: start: 19930101
  2. DEXEDRINE [Suspect]
     Dosage: 20MG TWICE PER DAY
     Route: 048
  3. ATENOLOL [Concomitant]
  4. BUSPAR [Concomitant]

REACTIONS (3)
  - ADVERSE EVENT [None]
  - DISTURBANCE IN ATTENTION [None]
  - DRUG INEFFECTIVE [None]
